FAERS Safety Report 15258585 (Version 1)
Quarter: 2018Q3

REPORT INFORMATION
  Report Type: Spontaneous
  Country: FI (occurrence: FI)
  Receive Date: 20180809
  Receipt Date: 20180809
  Transmission Date: 20181010
  Serious: Yes (Hospitalization)
  Sender: FDA-Public Use
  Company Number: FI-TEVA-2018-FI-937101

PATIENT
  Age: 44 Year
  Sex: Male

DRUGS (6)
  1. MIRTAZAPINE. [Suspect]
     Active Substance: MIRTAZAPINE
     Dosage: UNK, QD
     Route: 048
  2. AZAMUN [Suspect]
     Active Substance: AZATHIOPRINE
     Dosage: UNK UNK, QD
     Route: 048
  3. COLIFOAM [Suspect]
     Active Substance: HYDROCORTISONE
     Route: 054
  4. AZAMUN [Suspect]
     Active Substance: AZATHIOPRINE
     Route: 048
     Dates: start: 20180101
  5. AZAMUN [Suspect]
     Active Substance: AZATHIOPRINE
     Route: 048
     Dates: start: 20180109, end: 201801
  6. AZAMUN [Suspect]
     Active Substance: AZATHIOPRINE
     Route: 048
     Dates: start: 20171114

REACTIONS (3)
  - Pharyngitis bacterial [Unknown]
  - Abdominal pain [Recovered/Resolved]
  - Pyrexia [Recovered/Resolved]
